FAERS Safety Report 10922050 (Version 1)
Quarter: 2015Q1

REPORT INFORMATION
  Report Type: Spontaneous
  Country: ES (occurrence: None)
  Receive Date: 20150312
  Receipt Date: 20150312
  Transmission Date: 20150721
  Serious: No
  Sender: FDA-Public Use
  Company Number: 2277442

PATIENT
  Age: 49 Year
  Sex: Male

DRUGS (4)
  1. OXALIPLATIN. [Suspect]
     Active Substance: OXALIPLATIN
     Indication: RECTAL ADENOCARCINOMA
     Dates: start: 20120221, end: 20120530
  2. RALTITREXED DISODIUM [Suspect]
     Active Substance: RALTITREXED
     Indication: RECTAL ADENOCARCINOMA
     Dates: start: 20120925, end: 20121029
  3. FLUVOXAMINE [Concomitant]
     Active Substance: FLUVOXAMINE
  4. CAPECITABINE. [Suspect]
     Active Substance: CAPECITABINE
     Indication: RECTAL ADENOCARCINOMA
     Dates: start: 20111114, end: 20111216

REACTIONS (11)
  - Abdominal distension [None]
  - Vomiting [None]
  - Muscle spasms [None]
  - Weight decreased [None]
  - Constipation [None]
  - Nausea [None]
  - Intestinal obstruction [None]
  - Neoplasm recurrence [None]
  - Decreased appetite [None]
  - Asthenia [None]
  - Abdominal pain [None]
